FAERS Safety Report 10550697 (Version 1)
Quarter: 2014Q4

REPORT INFORMATION
  Report Type: Report from Study
  Country: US (occurrence: US)
  Receive Date: 20141029
  Receipt Date: 20141029
  Transmission Date: 20150529
  Serious: Yes (Hospitalization)
  Sender: FDA-Public Use
  Company Number: US-AMGEN-USASL2014082985

PATIENT
  Age: 38 Year
  Sex: Female

DRUGS (2)
  1. ORENCIA [Concomitant]
     Active Substance: ABATACEPT
     Dosage: UNK
  2. ENBREL [Suspect]
     Active Substance: ETANERCEPT
     Indication: RHEUMATOID ARTHRITIS
     Dosage: UNK UNK, QWK
     Route: 065
     Dates: start: 20140110, end: 201409

REACTIONS (2)
  - Drug ineffective [Recovered/Resolved]
  - Cerebral thrombosis [Not Recovered/Not Resolved]

NARRATIVE: CASE EVENT DATE: 20140110
